FAERS Safety Report 8551414-X (Version None)
Quarter: 2012Q3

REPORT INFORMATION
  Report Type: 
  Country: None (occurrence: None)
  Receive Date: 20120723
  Receipt Date: 20120723
  Transmission Date: 20120928
  Serious: Yes (Other)
  Sender: FDA-Public Use
  Company Number: None

PATIENT
  Age: 78 Year
  Sex: Male
  Weight: 77.1115 kg

DRUGS (2)
  1. AUGMENTIN '875' [Suspect]
     Indication: LABYRINTHITIS
     Dosage: 1 PILL TWICE DAILY
     Dates: start: 20120705, end: 20120720
  2. MUCINEX [Suspect]
     Indication: INCREASED UPPER AIRWAY SECRETION
     Dosage: 2 PILLS TWICE DAILY
     Dates: start: 20120717, end: 20120718

REACTIONS (2)
  - BLOOD URINE PRESENT [None]
  - SELF-MEDICATION [None]
